FAERS Safety Report 5060531-0 (Version None)
Quarter: 2006Q2

REPORT INFORMATION
  Report Type: 
  Country: None (occurrence: None)
  Receive Date: 20060630
  Receipt Date: 20060222
  Transmission Date: 20061013
  Serious: Yes (Life-Threatening, Hospitalization)
  Sender: FDA-Public Use
  Company Number: VISP-PR-0602S-0096

PATIENT
  Age: 73 Year
  Sex: Female
  Weight: 70.7611 kg

DRUGS (1)
  1. VISIPAQUE [Suspect]
     Indication: CHEST PAIN
     Dosage: 70 ML, SINGLE DOSE, I.A.
     Route: 013
     Dates: start: 20060217, end: 20060217

REACTIONS (3)
  - ATRIAL FIBRILLATION [None]
  - HYPOTENSION [None]
  - TACHYCARDIA [None]
